FAERS Safety Report 8875429 (Version 2)
Quarter: 2012Q4

REPORT INFORMATION
  Report Type: 
  Country: JP (occurrence: JP)
  Receive Date: 20121023
  Receipt Date: 20121107
  Transmission Date: 20130627
  Serious: Yes (Hospitalization)
  Sender: FDA-Public Use
  Company Number: JP-BAYER-2012-103114

PATIENT
  Age: 46 Year
  Sex: Female

DRUGS (2)
  1. YAZ [Suspect]
     Indication: UTERINE MYOMA
     Dosage: Daily dose 1 DF
     Route: 048
     Dates: start: 20120512, end: 20121002
  2. YAZ [Suspect]
     Indication: EXCESSIVE MENSTRUATION

REACTIONS (4)
  - Anaemia [Recovering/Resolving]
  - Dyspnoea [Recovering/Resolving]
  - Oedema peripheral [Recovering/Resolving]
  - Off label use [None]
